FAERS Safety Report 12738587 (Version 1)
Quarter: 2016Q3

REPORT INFORMATION
  Report Type: Spontaneous
  Country: US (occurrence: US)
  Receive Date: 20160912
  Receipt Date: 20160912
  Transmission Date: 20161109
  Serious: No
  Sender: FDA-Public Use
  Company Number: US-SA-2016SA143353

PATIENT
  Age: 60 Year
  Sex: Male

DRUGS (5)
  1. METFORMIN [Concomitant]
     Active Substance: METFORMIN HYDROCHLORIDE
  2. TOUJEO [Suspect]
     Active Substance: INSULIN GLARGINE
     Indication: TYPE 2 DIABETES MELLITUS
     Dosage: DOSE:94 UNIT(S)
     Route: 065
     Dates: start: 20160802, end: 20160802
  3. SOLOSTAR [Concomitant]
     Active Substance: DEVICE
     Dates: start: 201606
  4. HUMALOG [Concomitant]
     Active Substance: INSULIN LISPRO
  5. TOUJEO [Suspect]
     Active Substance: INSULIN GLARGINE
     Indication: TYPE 2 DIABETES MELLITUS
     Dosage: DOSE: INCREASE HIS TOUJEO DOSE BY 2 UNITS EVERY 4 DAYS IF HIS BS LEVEL IS ABOVE 100 DOSE:80 UNIT(S)
     Route: 065
     Dates: start: 201606

REACTIONS (2)
  - Abdominal pain upper [Unknown]
  - Blood glucose decreased [Unknown]
